FAERS Safety Report 5084368-1 (Version None)
Quarter: 2006Q3

REPORT INFORMATION
  Report Type: 
  Country: None (occurrence: None)
  Receive Date: 20060821
  Receipt Date: 20060809
  Transmission Date: 20061208
  Serious: Yes (Death)
  Sender: FDA-Public Use
  Company Number: US-AMGEN-US189465

PATIENT
  Sex: Male

DRUGS (8)
  1. NEULASTA [Suspect]
     Indication: CHEMOTHERAPY
     Route: 065
  2. WARFARIN [Concomitant]
     Route: 065
  3. HYDROXYZINE [Concomitant]
  4. COMPAZINE [Concomitant]
     Route: 065
  5. ZOFRAN [Concomitant]
     Route: 065
  6. LORAZEPAM [Concomitant]
     Route: 065
  7. LOMOTIL [Concomitant]
     Route: 065
  8. VINBLASTINE [Concomitant]
     Route: 065

REACTIONS (1)
  - DEATH [None]
